FAERS Safety Report 4930126-5 (Version None)
Quarter: 2006Q1

REPORT INFORMATION
  Report Type: 
  Country: None (occurrence: None)
  Receive Date: 20060302
  Receipt Date: 20060220
  Transmission Date: 20060701
  Serious: Yes (Hospitalization)
  Sender: FDA-Public Use
  Company Number: BE-ABBOTT-06P-013-0325626-00

PATIENT
  Sex: Female

DRUGS (8)
  1. HUMIRA [Suspect]
     Indication: DRUG USE FOR UNKNOWN INDICATION
     Dates: start: 20050929, end: 20051013
  2. HUMIRA [Suspect]
     Dates: start: 20051207
  3. PERINDOPRIL [Concomitant]
     Indication: DRUG USE FOR UNKNOWN INDICATION
  4. LEVOTHYROXINE SODIUM [Concomitant]
     Indication: DRUG USE FOR UNKNOWN INDICATION
  5. INDOMETHACIN [Concomitant]
     Indication: DRUG USE FOR UNKNOWN INDICATION
  6. INDOMETHACIN [Concomitant]
  7. GLUTEAL [Concomitant]
     Indication: EYE DISORDER
  8. HYABAK [Concomitant]
     Indication: EYE DISORDER

REACTIONS (5)
  - CHILLS [None]
  - FLUID RETENTION [None]
  - LOCALISED INFECTION [None]
  - PAIN IN EXTREMITY [None]
  - PYREXIA [None]
